FAERS Safety Report 6604254-2 (Version None)
Quarter: 2010Q1

REPORT INFORMATION
  Report Type: 
  Country: None (occurrence: None)
  Receive Date: 20100226
  Receipt Date: 20090804
  Transmission Date: 20100710
  Serious: No
  Sender: FDA-Public Use
  Company Number: A0798443A

PATIENT
  Age: 17 Year
  Sex: Female

DRUGS (2)
  1. LAMICTAL CD [Suspect]
     Indication: EPILEPSY
     Dosage: 100MG PER DAY
     Route: 048
     Dates: start: 20040101
  2. CLARITIN [Concomitant]

REACTIONS (6)
  - COUGH [None]
  - LIP SWELLING [None]
  - OROPHARYNGEAL PAIN [None]
  - PYREXIA [None]
  - RASH GENERALISED [None]
  - URTICARIA [None]
